FAERS Safety Report 5340380-6 (Version None)
Quarter: 2007Q2

REPORT INFORMATION
  Report Type: 
  Country: None (occurrence: None)
  Receive Date: 20070531
  Receipt Date: 20070517
  Transmission Date: 20071010
  Serious: No
  Sender: FDA-Public Use
  Company Number: GB-JNJFOC-20070502914

PATIENT
  Age: 24 Year
  Sex: Female

DRUGS (3)
  1. TRAMADOL HCL [Suspect]
     Indication: BACK PAIN
     Route: 048
  2. BECLOMETHASONE DIPROPIONATE [Concomitant]
     Route: 055
  3. SALBUTAMOL [Concomitant]
     Route: 055

REACTIONS (4)
  - ANXIETY [None]
  - DYSKINESIA [None]
  - INSOMNIA [None]
  - MYALGIA [None]
